FAERS Safety Report 11783308 (Version 1)
Quarter: 2015Q4

REPORT INFORMATION
  Report Type: Report from Study
  Country: ZA (occurrence: ZA)
  Receive Date: 20151127
  Receipt Date: 20151127
  Transmission Date: 20160305
  Serious: Yes (Other)
  Sender: FDA-Public Use
  Company Number: PHHY2015ZA153169

PATIENT
  Age: 37 Year
  Sex: Female

DRUGS (3)
  1. ACLASTA [Suspect]
     Active Substance: ZOLEDRONIC ACID
     Dosage: 1 DF, Q12MO (5 MG/100 ML ANNUALLY)
     Route: 065
     Dates: start: 201411
  2. ACLASTA [Suspect]
     Active Substance: ZOLEDRONIC ACID
     Indication: OSTEOPOROSIS
     Dosage: 1 DF, Q12MO (5 MG/100 ML ANNUALLY)
     Route: 065
     Dates: start: 2012
  3. ACLASTA [Suspect]
     Active Substance: ZOLEDRONIC ACID
     Dosage: 1 DF, Q12MO (5 MG/100 ML ANNUALLY)
     Route: 065
     Dates: start: 201311

REACTIONS (2)
  - Limb injury [Unknown]
  - Foot fracture [Unknown]

NARRATIVE: CASE EVENT DATE: 201503
